FAERS Safety Report 6276120-6 (Version None)
Quarter: 2009Q3

REPORT INFORMATION
  Report Type: 
  Country: None (occurrence: None)
  Receive Date: 20090717
  Receipt Date: 20090717
  Transmission Date: 20100115
  Serious: Yes (Other)
  Sender: FDA-Public Use
  Company Number: None

PATIENT
  Age: 32 Year
  Sex: Female
  Weight: 115.6672 kg

DRUGS (1)
  1. AMPHETAMINE 25MG ER [Suspect]
     Indication: ATTENTION DEFICIT/HYPERACTIVITY DISORDER
     Dosage: 1 CAPSULE EACH AM PO
     Route: 048
     Dates: start: 20090508

REACTIONS (3)
  - DRY MOUTH [None]
  - HYPERHIDROSIS [None]
  - NAUSEA [None]
